FAERS Safety Report 18174709 (Version 2)
Quarter: 2020Q3

REPORT INFORMATION
  Report Type: Spontaneous
  Country: US (occurrence: US)
  Receive Date: 20200820
  Receipt Date: 20200921
  Transmission Date: 20201103
  Serious: Yes (Other)
  Sender: FDA-Public Use
  Company Number: US-PFIZER INC-2020321612

PATIENT
  Age: 61 Year
  Sex: Male

DRUGS (2)
  1. SULFASALAZINE. [Concomitant]
     Active Substance: SULFASALAZINE
     Dosage: UNK
     Dates: end: 20200810
  2. XELJANZ XR [Suspect]
     Active Substance: TOFACITINIB CITRATE
     Indication: RHEUMATOID ARTHRITIS
     Dosage: 11 MG, 1X/DAY
     Route: 048
     Dates: start: 20200810, end: 20200814

REACTIONS (10)
  - Dysuria [Not Recovered/Not Resolved]
  - Tremor [Unknown]
  - Cold sweat [Unknown]
  - Pain [Unknown]
  - Pollakiuria [Not Recovered/Not Resolved]
  - Blood pressure increased [Recovering/Resolving]
  - Muscular weakness [Unknown]
  - Rhinorrhoea [Not Recovered/Not Resolved]
  - Muscle spasms [Unknown]
  - Abdominal discomfort [Unknown]

NARRATIVE: CASE EVENT DATE: 202008
